FAERS Safety Report 8962453 (Version 1)
Quarter: 2012Q4

REPORT INFORMATION
  Report Type: Spontaneous
  Country: US (occurrence: None)
  Receive Date: 20121211
  Receipt Date: 20121211
  Transmission Date: 20130627
  Serious: No
  Sender: FDA-Public Use
  Company Number: None

PATIENT
  Sex: Male
  Weight: 93.6 kg

DRUGS (4)
  1. OXALIPLATIN [Suspect]
  2. 5-FLUOROURACIL [Suspect]
  3. BEVACIZUMAB [Suspect]
  4. LEUCOVORIN CALCIUM [Suspect]

REACTIONS (1)
  - Hypersensitivity [None]
